FAERS Safety Report 10627437 (Version 1)
Quarter: 2014Q4

REPORT INFORMATION
  Report Type: Spontaneous
  Country: GB (occurrence: GB)
  Receive Date: 20141205
  Receipt Date: 20141205
  Transmission Date: 20150529
  Serious: Yes (Life-Threatening, Disabling, Other)
  Sender: FDA-Public Use
  Company Number: GB-AUROBINDO-AUR-APL-2014-12704

PATIENT
  Age: 67 Year
  Sex: Female
  Weight: 79.37 kg

DRUGS (2)
  1. INSULIN HUMAN [Concomitant]
     Active Substance: INSULIN HUMAN
     Indication: PRODUCT USED FOR UNKNOWN INDICATION
     Dosage: UNK
     Route: 065
  2. LOSARTAN [Suspect]
     Active Substance: LOSARTAN
     Indication: BLOOD PRESSURE
     Dosage: 12.5 MG, ONCE A DAY
     Route: 048
     Dates: start: 20130408, end: 20141029

REACTIONS (4)
  - Dysstasia [Unknown]
  - Anxiety [Unknown]
  - Disorientation [Unknown]
  - Vertigo [Not Recovered/Not Resolved]

NARRATIVE: CASE EVENT DATE: 20141001
